FAERS Safety Report 11024996 (Version 1)
Quarter: 2015Q2

REPORT INFORMATION
  Report Type: Spontaneous
  Country: FR (occurrence: FR)
  Receive Date: 20150414
  Receipt Date: 20150414
  Transmission Date: 20150821
  Serious: Yes (Hospitalization)
  Sender: FDA-Public Use
  Company Number: FR-ASTELLAS-2015EU000315

PATIENT
  Age: 75 Year
  Sex: Male

DRUGS (1)
  1. XTANDI [Suspect]
     Active Substance: ENZALUTAMIDE
     Indication: PROSTATE CANCER
     Dosage: 4 DF,DAILY
     Route: 048
     Dates: start: 2015

REACTIONS (5)
  - Intentional product misuse [Unknown]
  - Urinary tract infection [Unknown]
  - Vomiting [Recovered/Resolved]
  - Product size issue [Unknown]
  - Dysphagia [Unknown]
